FAERS Safety Report 4674041-3 (Version None)
Quarter: 2005Q2

REPORT INFORMATION
  Report Type: 
  Country: None (occurrence: None)
  Receive Date: 20050525
  Receipt Date: 20050511
  Transmission Date: 20051028
  Serious: Yes (Other)
  Sender: FDA-Public Use
  Company Number: JP_050506541

PATIENT
  Age: 63 Year
  Sex: Male

DRUGS (2)
  1. GEMZAR [Suspect]
     Indication: PANCREATIC CARCINOMA
     Dosage: 1600 MG OTHER
     Route: 050
     Dates: start: 20050506
  2. OMEPRAZON (OMEPRAZOLE RATIOPHARM) [Concomitant]

REACTIONS (1)
  - MACULAR DEGENERATION [None]
